FAERS Safety Report 4452114-8 (Version None)
Quarter: 2004Q3

REPORT INFORMATION
  Report Type: 
  Country: None (occurrence: None)
  Receive Date: 20040916
  Receipt Date: 20040806
  Transmission Date: 20050211
  Serious: Yes (Other)
  Sender: FDA-Public Use
  Company Number: 2004S1002300

PATIENT
  Age: 65 Year
  Sex: Female
  Weight: 117.4816 kg

DRUGS (1)
  1. NITROFURANTOIN (MONOHYDRATE/MACROCRYSTALS) [Suspect]
     Indication: URINARY TRACT INFECTION
     Dosage: 100 MG BID, ORAL
     Route: 048
     Dates: start: 20040803, end: 20040804

REACTIONS (7)
  - ARTHRALGIA [None]
  - CHILLS [None]
  - DECREASED APPETITE [None]
  - DYSPNOEA [None]
  - MYALGIA [None]
  - PYREXIA [None]
  - WHEEZING [None]
